FAERS Safety Report 6409408-6 (Version None)
Quarter: 2009Q4

REPORT INFORMATION
  Report Type: 
  Country: None (occurrence: None)
  Receive Date: 20091021
  Receipt Date: 20091014
  Transmission Date: 20100525
  Serious: Yes (Other)
  Sender: FDA-Public Use
  Company Number: GB-MERCK-0909GBR00064

PATIENT
  Age: 50 Year
  Sex: Female

DRUGS (6)
  1. ZOCOR [Suspect]
     Route: 048
  2. IRBESARTAN [Concomitant]
     Route: 065
  3. BENDROFLUMETHIAZIDE [Concomitant]
     Route: 065
  4. PREDNISOLONE [Concomitant]
     Route: 065
  5. AZATHIOPRINE [Concomitant]
     Route: 065
  6. HYDROXYCHLOROQUINE SULFATE [Concomitant]
     Route: 065

REACTIONS (1)
  - CEREBROVASCULAR ACCIDENT [None]
